FAERS Safety Report 6257507-4 (Version None)
Quarter: 2009Q3

REPORT INFORMATION
  Report Type: 
  Country: None (occurrence: None)
  Receive Date: 20090706
  Receipt Date: 20090615
  Transmission Date: 20100115
  Serious: Yes (Hospitalization)
  Sender: FDA-Public Use
  Company Number: US-ROCHE-641367

PATIENT
  Sex: Male

DRUGS (2)
  1. MYCOPHENOLATE MOFETIL [Suspect]
     Indication: LIVER TRANSPLANT
     Route: 065
     Dates: start: 20081113
  2. TACROLIMUS [Suspect]
     Indication: LIVER TRANSPLANT
     Dosage: DOSE: 6 MG 1 DAY
     Route: 048
     Dates: start: 20081115, end: 20090427

REACTIONS (2)
  - ANAEMIA [None]
  - ENTEROCOCCAL BACTERAEMIA [None]
